FAERS Safety Report 21375281 (Version 1)
Quarter: 2022Q3

REPORT INFORMATION
  Report Type: Spontaneous
  Country: DE (occurrence: DE)
  Receive Date: 20220926
  Receipt Date: 20220926
  Transmission Date: 20221026
  Serious: Yes (Other)
  Sender: FDA-Public Use
  Company Number: DE-BRISTOL-MYERS SQUIBB COMPANY-2022-109533

PATIENT
  Age: 74 Year

DRUGS (3)
  1. NIVOLUMAB [Suspect]
     Active Substance: NIVOLUMAB
     Indication: Malignant melanoma
     Dosage: DOSE : SEE DESCRIBE EVENTS FIELD;     FREQ : UNAVAILABLE
     Route: 042
     Dates: start: 201810
  2. NIVOLUMAB [Suspect]
     Active Substance: NIVOLUMAB
     Route: 042
     Dates: start: 201901
  3. IPILIMUMAB [Suspect]
     Active Substance: IPILIMUMAB
     Indication: Malignant melanoma
     Route: 042
     Dates: start: 201810

REACTIONS (7)
  - Malignant neoplasm progression [Unknown]
  - Metastases to central nervous system [Unknown]
  - Autoimmune colitis [Unknown]
  - Autoimmune hypothyroidism [Unknown]
  - Lymphocytic hypophysitis [Unknown]
  - Rheumatoid arthritis [Unknown]
  - Hair colour changes [Unknown]

NARRATIVE: CASE EVENT DATE: 20181201
